FAERS Safety Report 16146028 (Version 1)
Quarter: 2019Q2

REPORT INFORMATION
  Report Type: Spontaneous
  Country: ES (occurrence: ES)
  Receive Date: 20190402
  Receipt Date: 20190402
  Transmission Date: 20190711
  Serious: Yes (Life-Threatening)
  Sender: FDA-Public Use
  Company Number: ES-JNJFOC-20190342691

PATIENT
  Age: 8 Month
  Sex: Male

DRUGS (4)
  1. IBUPROFENO (1769A) [Suspect]
     Active Substance: IBUPROFEN
     Indication: PYREXIA
     Route: 048
     Dates: start: 20190205, end: 20190207
  2. IBUPROFENO (1769A) [Suspect]
     Active Substance: IBUPROFEN
     Route: 048
  3. CEFOTAXIMA [Suspect]
     Active Substance: CEFOTAXIME SODIUM
     Indication: MASTOIDITIS
     Route: 042
     Dates: start: 20190205, end: 20190208
  4. CLOXACILINA [Suspect]
     Active Substance: CLOXACILLIN
     Indication: MASTOIDITIS
     Route: 042
     Dates: start: 20190205, end: 20190208

REACTIONS (1)
  - Agranulocytosis [Recovered/Resolved]

NARRATIVE: CASE EVENT DATE: 20190208
